FAERS Safety Report 7090076-8 (Version None)
Quarter: 2010Q4

REPORT INFORMATION
  Report Type: 
  Country: None (occurrence: None)
  Receive Date: 20101104
  Receipt Date: 20101104
  Transmission Date: 20110411
  Serious: No
  Sender: FDA-Public Use
  Company Number: None

PATIENT
  Age: 30 Year
  Sex: Female

DRUGS (2)
  1. TUBERSOL [Suspect]
     Dosage: IM
  2. PRENATAL VITAMINS [Concomitant]

REACTIONS (1)
  - WRONG DRUG ADMINISTERED [None]
